FAERS Safety Report 14654088 (Version 1)
Quarter: 2018Q1

REPORT INFORMATION
  Report Type: Spontaneous
  Country: US (occurrence: US)
  Receive Date: 20180317
  Receipt Date: 20180317
  Transmission Date: 20180509
  Serious: Yes (Life-Threatening, Hospitalization)
  Sender: FDA-Public Use
  Company Number: None

PATIENT
  Age: 25 Year
  Sex: Female
  Weight: 64.41 kg

DRUGS (1)
  1. MIRENA [Suspect]
     Active Substance: LEVONORGESTREL
     Dates: start: 20171117

REACTIONS (4)
  - Intentional product misuse [None]
  - Suicidal ideation [None]
  - Suicide attempt [None]
  - Analgesic drug level increased [None]

NARRATIVE: CASE EVENT DATE: 20180208
